FAERS Safety Report 6503886-X (Version None)
Quarter: 2009Q4

REPORT INFORMATION
  Report Type: 
  Country: None (occurrence: None)
  Receive Date: 20091217
  Receipt Date: 20091210
  Transmission Date: 20100525
  Serious: Yes (Hospitalization)
  Sender: FDA-Public Use
  Company Number: B0615475A

PATIENT
  Sex: Female
  Weight: 57.1 kg

DRUGS (1)
  1. PAZOPANIB [Suspect]
     Indication: SARCOMA
     Route: 048
     Dates: start: 20091014

REACTIONS (4)
  - EMOTIONAL DISTRESS [None]
  - OEDEMA PERIPHERAL [None]
  - PAIN [None]
  - WEIGHT BEARING DIFFICULTY [None]
